FAERS Safety Report 15781316 (Version 1)
Quarter: 2019Q1

REPORT INFORMATION
  Report Type: Spontaneous
  Country: US (occurrence: US)
  Receive Date: 20190102
  Receipt Date: 20190102
  Transmission Date: 20190417
  Serious: No
  Sender: FDA-Public Use
  Company Number: US-SA-2018SA396725

PATIENT
  Age: 55 Year
  Sex: Male

DRUGS (1)
  1. NASACORT ALLERGY 24HR [Suspect]
     Active Substance: TRIAMCINOLONE ACETONIDE
     Indication: MULTIPLE ALLERGIES
     Dosage: 2 DF, BID, 2 SPRAYS EACH NOSTRIL TWICE A DAY
     Route: 045
     Dates: start: 20181201, end: 20181225

REACTIONS (3)
  - Underdose [Unknown]
  - Lacrimation increased [Unknown]
  - Eye pruritus [Unknown]
